FAERS Safety Report 17469242 (Version 1)
Quarter: 2020Q1

REPORT INFORMATION
  Report Type: Report from Study
  Country: TW (occurrence: TW)
  Receive Date: 20200227
  Receipt Date: 20200227
  Transmission Date: 20200409
  Serious: Yes (Hospitalization)
  Sender: FDA-Public Use
  Company Number: TW-TAKEDA-2020TUS011427

PATIENT
  Sex: Male

DRUGS (1)
  1. VEDOLIZUMAB [Suspect]
     Active Substance: VEDOLIZUMAB
     Indication: COLITIS ULCERATIVE
     Dosage: 300 MILLIGRAM
     Route: 042
     Dates: start: 20190801, end: 20200102

REACTIONS (5)
  - Hypercholesterolaemia [Recovering/Resolving]
  - Clumsiness [Recovering/Resolving]
  - Ejection fraction abnormal [Recovering/Resolving]
  - Hypoaesthesia [Recovering/Resolving]
  - Left ventricular dysfunction [Recovering/Resolving]
